FAERS Safety Report 8055150-8 (Version None)
Quarter: 2012Q1

REPORT INFORMATION
  Report Type: 
  Country: None (occurrence: None)
  Receive Date: 20120119
  Receipt Date: 20120112
  Transmission Date: 20120608
  Serious: Yes (Hospitalization)
  Sender: FDA-Public Use
  Company Number: JP-PFIZER INC-2011277628

PATIENT
  Age: 84 Year
  Sex: Female

DRUGS (7)
  1. TRACLEER [Concomitant]
     Indication: PULMONARY HYPERTENSION
     Dosage: 2 TABLETS DAILY
     Route: 048
     Dates: start: 20110910, end: 20111104
  2. LEVOTHYROXINE SODIUM [Concomitant]
     Dosage: UNK
     Route: 048
  3. SILDENAFIL [Suspect]
     Dosage: 20 MG, 3X/DAY
     Route: 048
     Dates: start: 20111020
  4. SILDENAFIL CITRATE [Suspect]
     Indication: PULMONARY HYPERTENSION
     Dosage: 20 MG, 1X/DAY
     Route: 048
     Dates: start: 20110730, end: 20110812
  5. SILDENAFIL CITRATE [Suspect]
     Dosage: 20 MG, 2X/DAY
     Route: 048
     Dates: start: 20110813, end: 20111019
  6. LASIX [Concomitant]
     Dosage: UNK
     Route: 048
  7. PROCYLIN [Concomitant]
     Dosage: UNK
     Route: 048

REACTIONS (1)
  - GENERALISED OEDEMA [None]
